FAERS Safety Report 11075812 (Version 1)
Quarter: 2015Q2

REPORT INFORMATION
  Report Type: Spontaneous
  Country: FR (occurrence: FR)
  Receive Date: 20150429
  Receipt Date: 20150429
  Transmission Date: 20150821
  Serious: Yes (Hospitalization)
  Sender: FDA-Public Use
  Company Number: FR-SA-2015SA054735

PATIENT
  Age: 78 Year
  Sex: Male

DRUGS (2)
  1. TARGOCID [Suspect]
     Active Substance: TEICOPLANIN
     Route: 042
     Dates: start: 20150310, end: 20150318
  2. RIFAMPICINE [Suspect]
     Active Substance: RIFAMPIN
     Route: 065
     Dates: start: 20150310, end: 20150318

REACTIONS (1)
  - Pancytopenia [Recovered/Resolved]

NARRATIVE: CASE EVENT DATE: 20150324
